FAERS Safety Report 9602415 (Version 1)
Quarter: 2013Q4

REPORT INFORMATION
  Report Type: Spontaneous
  Country: FR (occurrence: FR)
  Receive Date: 20131007
  Receipt Date: 20131007
  Transmission Date: 20140711
  Serious: Yes (Other)
  Sender: FDA-Public Use
  Company Number: FR-ASTRAZENECA-2013SE71599

PATIENT
  Age: 22575 Day
  Sex: Male

DRUGS (12)
  1. INEXIUM [Suspect]
     Indication: ABDOMINAL PAIN UPPER
     Route: 048
     Dates: start: 20130829, end: 20130903
  2. DOLIPRANE [Suspect]
     Indication: PAIN
     Dosage: PARACETAMOL MACO PHARMA
     Dates: end: 20130831
  3. DOLIPRANE [Suspect]
     Indication: PAIN
     Route: 048
     Dates: start: 20130831, end: 20130903
  4. LEXOMIL ROCHE [Suspect]
     Route: 048
     Dates: start: 20130829, end: 20130903
  5. TAHOR [Suspect]
     Indication: INFARCTION
     Route: 048
     Dates: start: 20130829, end: 20130903
  6. LOVENOX [Suspect]
     Indication: MYOCARDIAL INFARCTION
     Route: 058
     Dates: start: 20130828, end: 20130903
  7. ALDACTONE [Suspect]
     Indication: INFARCTION
     Route: 048
     Dates: start: 20130902, end: 20130903
  8. BISOCE [Concomitant]
     Dates: end: 201308
  9. BRILIQUE [Concomitant]
     Dates: end: 201308
  10. KARDEGIC [Concomitant]
     Dates: end: 201308
  11. TRIATEC [Concomitant]
     Dates: end: 201308
  12. OGAST [Concomitant]
     Indication: ABDOMINAL PAIN UPPER
     Dates: end: 20130829

REACTIONS (4)
  - Blood alkaline phosphatase increased [Recovering/Resolving]
  - Alanine aminotransferase [Recovering/Resolving]
  - Aspartate aminotransferase [Recovering/Resolving]
  - Gamma-glutamyltransferase [Recovering/Resolving]
